FAERS Safety Report 5698781-2 (Version None)
Quarter: 2008Q2

REPORT INFORMATION
  Report Type: 
  Country: None (occurrence: None)
  Receive Date: 20080404
  Receipt Date: 20080319
  Transmission Date: 20081010
  Serious: Yes (Congenital Anomaly, Other)
  Sender: FDA-Public Use
  Company Number: DSA_31569_2008

PATIENT

DRUGS (1)
  1. ENALAPRIL MALEATE [Suspect]
     Indication: DRUG EXPOSURE DURING PREGNANCY
     Dosage: (10 MG QD ORAL)
     Route: 048

REACTIONS (8)
  - ABORTION INDUCED [None]
  - CONGENITAL JAW MALFORMATION [None]
  - CONGENITAL NOSE MALFORMATION [None]
  - CONGENITAL ORAL MALFORMATION [None]
  - DRUG EXPOSURE DURING PREGNANCY [None]
  - DYSMORPHISM [None]
  - FOETAL GROWTH RETARDATION [None]
  - PULMONARY HYPOPLASIA [None]
